FAERS Safety Report 19257134 (Version 3)
Quarter: 2021Q2

REPORT INFORMATION
  Report Type: Spontaneous
  Country: FR (occurrence: FR)
  Receive Date: 20210513
  Receipt Date: 20210621
  Transmission Date: 20210717
  Serious: Yes (Death, Hospitalization, Other)
  Sender: FDA-Public Use
  Company Number: FR-GILEAD-2021-0530451

PATIENT
  Age: 67 Year
  Sex: Female
  Weight: 54 kg

DRUGS (5)
  1. PIPERACILLINE TAZOBACTAM [Concomitant]
     Active Substance: PIPERACILLIN SODIUM\TAZOBACTAM SODIUM
     Indication: SEPSIS
     Dosage: UNK
     Route: 042
     Dates: start: 20210410, end: 20210420
  2. GENTAMYCINE [GENTAMICIN] [Concomitant]
     Active Substance: GENTAMICIN
     Dosage: UNK
     Route: 042
     Dates: start: 20210412, end: 20210414
  3. AXICABTAGENE CILOLEUCEL [Suspect]
     Active Substance: AXICABTAGENE CILOLEUCEL
     Indication: PRODUCT USED FOR UNKNOWN INDICATION
     Dosage: UNK
     Route: 042
     Dates: start: 20210308, end: 20210308
  4. LENOGRASTIM [Concomitant]
     Active Substance: LENOGRASTIM
     Dosage: UNK
     Route: 042
     Dates: start: 20210412, end: 20210420
  5. GRANULOCYTES [Concomitant]
     Active Substance: GRANULOCYTES
     Dosage: UNK
     Dates: start: 20210414, end: 20210416

REACTIONS (7)
  - Bone marrow failure [Unknown]
  - Thrombocytopenia [Recovering/Resolving]
  - Sudden death [Fatal]
  - Pancytopenia [Unknown]
  - Cytopenia [Unknown]
  - Sepsis [Recovered/Resolved]
  - Neutropenia [Recovered/Resolved]

NARRATIVE: CASE EVENT DATE: 2021
